FAERS Safety Report 18649492 (Version 2)
Quarter: 2021Q1

REPORT INFORMATION
  Report Type: Spontaneous
  Country: US (occurrence: US)
  Receive Date: 20201222
  Receipt Date: 20210120
  Transmission Date: 20210419
  Serious: No
  Sender: FDA-Public Use
  Company Number: US-BAYER-2020-282456

PATIENT
  Sex: Female

DRUGS (1)
  1. MIRENA [Suspect]
     Active Substance: LEVONORGESTREL
     Dosage: 20 ?G PER DAY CONTINUOUSLY
     Route: 015
     Dates: start: 202003, end: 202101

REACTIONS (3)
  - Hormone level abnormal [None]
  - Adverse reaction [Recovered/Resolved]
  - Patient dissatisfaction with device [Recovered/Resolved]

NARRATIVE: CASE EVENT DATE: 202005
